FAERS Safety Report 24166018 (Version 3)
Quarter: 2024Q4

REPORT INFORMATION
  Report Type: Spontaneous
  Country: JP (occurrence: JP)
  Receive Date: 20240802
  Receipt Date: 20241018
  Transmission Date: 20250115
  Serious: Yes (Death, Disabling, Other)
  Sender: ROCHE
  Company Number: JP-CHUGAI-2024025527AA

PATIENT
  Sex: Male

DRUGS (2)
  1. AVASTIN [Suspect]
     Active Substance: BEVACIZUMAB
     Indication: Hepatocellular carcinoma
     Dosage: 15 MILLILITER, ONCE/3WEEKS
     Route: 050
  2. TECENTRIQ [Suspect]
     Active Substance: ATEZOLIZUMAB
     Indication: Hepatocellular carcinoma
     Dosage: UNK
     Route: 042

REACTIONS (3)
  - Tumour lysis syndrome [Not Recovered/Not Resolved]
  - Death [Fatal]
  - Liver disorder [Unknown]
